FAERS Safety Report 11564741 (Version 3)
Quarter: 2015Q4

REPORT INFORMATION
  Report Type: Spontaneous
  Country: SE (occurrence: SE)
  Receive Date: 20150928
  Receipt Date: 20151210
  Transmission Date: 20160304
  Serious: Yes (Hospitalization, Disabling, Other)
  Sender: FDA-Public Use
  Company Number: PHHY2015SE112814

PATIENT
  Age: 54 Year
  Sex: Female
  Weight: 71 kg

DRUGS (15)
  1. PREDNISOLON [Concomitant]
     Active Substance: PREDNISOLONE
     Indication: EYE INFLAMMATION
     Dosage: UNK
     Route: 065
     Dates: start: 201507
  2. PREDNISOLON [Concomitant]
     Active Substance: PREDNISOLONE
     Dosage: 2 DF, QD
     Route: 065
     Dates: start: 20080806
  3. ETALPHA [Concomitant]
     Active Substance: ALFACALCIDOL
     Indication: PRODUCT USED FOR UNKNOWN INDICATION
     Dosage: 0.25 UG, QD
     Route: 065
     Dates: start: 20070807
  4. PREDNISOLON ALTERNOVA [Concomitant]
     Active Substance: PREDNISOLONE
     Dosage: 5 MG, UNK
     Route: 065
     Dates: start: 20151020
  5. ADPORT [Concomitant]
     Active Substance: TACROLIMUS
     Indication: IMMUNOSUPPRESSION
     Dosage: 1 DF, BID
     Route: 065
     Dates: start: 20150921
  6. LOMIR [Concomitant]
     Indication: HYPERTENSION
     Dosage: 1 DF, BID
     Route: 065
     Dates: start: 20070807
  7. PREDNISOLON ALTERNOVA [Concomitant]
     Active Substance: PREDNISOLONE
     Indication: PRODUCT USED FOR UNKNOWN INDICATION
     Dosage: 2 DF, QD
     Route: 065
     Dates: start: 20150731
  8. PROPAVAN [Concomitant]
     Active Substance: PROPIOMAZINE
     Indication: PRODUCT USED FOR UNKNOWN INDICATION
     Dosage: 25 MG, QD
     Route: 065
     Dates: start: 20151020
  9. SANDIMMUN NEORAL [Suspect]
     Active Substance: CYCLOSPORINE
     Indication: RENAL TRANSPLANT
     Dosage: 125 MG (75 MG MORNING AND 50 MG EVENING)
     Route: 065
     Dates: start: 19920916, end: 20150922
  10. SANDIMMUN NEORAL [Suspect]
     Active Substance: CYCLOSPORINE
     Dosage: UNK
     Route: 065
  11. PREDNISOLON [Concomitant]
     Active Substance: PREDNISOLONE
     Indication: RENAL TRANSPLANT
     Dosage: UNK
     Route: 065
     Dates: start: 19920916
  12. WARAN [Concomitant]
     Active Substance: WARFARIN SODIUM
     Dosage: 2.5 MG, UNK
     Route: 065
     Dates: start: 20130503
  13. WARAN [Concomitant]
     Active Substance: WARFARIN SODIUM
     Indication: THROMBOSIS
     Dosage: UNK
     Route: 065
     Dates: start: 201103
  14. TRIMETOPRIM MEDA [Concomitant]
     Indication: PRODUCT USED FOR UNKNOWN INDICATION
     Dosage: 1 DF, QD
     Route: 065
     Dates: start: 20150723
  15. ADPORT [Concomitant]
     Active Substance: TACROLIMUS
     Dosage: 0.5 MG, UNK
     Route: 065
     Dates: start: 20150921

REACTIONS (14)
  - Visual acuity reduced [Not Recovered/Not Resolved]
  - Red blood cell count increased [Unknown]
  - Optic ischaemic neuropathy [Unknown]
  - Platelet count increased [Unknown]
  - Papilloedema [Not Recovered/Not Resolved]
  - Vision blurred [Unknown]
  - Blood homocysteine increased [Unknown]
  - Leiomyoma [Unknown]
  - White blood cell count increased [Unknown]
  - Blood albumin decreased [Unknown]
  - Haemorrhage [Unknown]
  - Activated partial thromboplastin time prolonged [Unknown]
  - International normalised ratio increased [Unknown]
  - Antiphospholipid antibodies positive [Unknown]

NARRATIVE: CASE EVENT DATE: 201311
